FAERS Safety Report 23800973 (Version 1)
Quarter: 2024Q2

REPORT INFORMATION
  Report Type: Spontaneous
  Country: US (occurrence: US)
  Receive Date: 20240430
  Receipt Date: 20240430
  Transmission Date: 20240716
  Serious: No
  Sender: FDA-Public Use
  Company Number: US-Calliditas-2024CAL00649

PATIENT
  Age: 65 Year
  Sex: Male

DRUGS (1)
  1. TARPEYO [Suspect]
     Active Substance: BUDESONIDE
     Indication: IgA nephropathy
     Dosage: 16MG (4MG CAPSULES) ONCE DAILY
     Route: 048
     Dates: start: 20240323

REACTIONS (7)
  - Inappropriate schedule of product administration [Unknown]
  - Proteinuria [Unknown]
  - Foaming at mouth [Unknown]
  - Anxiety [Unknown]
  - Irritability [Unknown]
  - Therapy interrupted [Unknown]
  - Asthenia [Unknown]
